FAERS Safety Report 5446356-2 (Version None)
Quarter: 2007Q3

REPORT INFORMATION
  Report Type: 
  Country: None (occurrence: None)
  Receive Date: 20070907
  Receipt Date: 20070829
  Transmission Date: 20080115
  Serious: Yes (Life-Threatening, Hospitalization)
  Sender: FDA-Public Use
  Company Number: B0482684A

PATIENT
  Age: 2 Day
  Sex: Male
  Weight: 3.2 kg

DRUGS (4)
  1. SERETIDE [Suspect]
     Indication: ASTHMA
     Dosage: 500MCG PER DAY
     Dates: start: 20060916, end: 20070606
  2. BECONASE [Suspect]
     Indication: VASCULITIS
     Dosage: 50MCG FOUR TIMES PER DAY
     Dates: start: 20060916, end: 20070606
  3. CORTANCYL [Suspect]
     Indication: ASTHMA
     Dosage: 11MG PER DAY
     Dates: start: 20060916, end: 20070606
  4. BRICANYL [Suspect]
     Indication: ASTHMA
     Dosage: 500MCG TWICE PER DAY
     Dates: start: 20060916, end: 20070606

REACTIONS (5)
  - ADRENAL INSUFFICIENCY [None]
  - BACTERIAL SEPSIS [None]
  - CONVULSION [None]
  - DRUG EXPOSURE DURING PREGNANCY [None]
  - HYPOGLYCAEMIA [None]
